FAERS Safety Report 6277084-1 (Version None)
Quarter: 2009Q3

REPORT INFORMATION
  Report Type: 
  Country: None (occurrence: None)
  Receive Date: 20090722
  Receipt Date: 20081229
  Transmission Date: 20100115
  Serious: No
  Sender: FDA-Public Use
  Company Number: US-BRISTOL-MYERS SQUIBB COMPANY-14457261

PATIENT
  Age: 54 Year
  Sex: Male

DRUGS (2)
  1. COUMADIN [Suspect]
     Dates: start: 20081201
  2. LOVENOX [Suspect]
     Dosage: INJECTION
     Dates: start: 20081118, end: 20081205

REACTIONS (1)
  - INJECTION SITE HAEMATOMA [None]
